FAERS Safety Report 8108544-6 (Version None)
Quarter: 2012Q1

REPORT INFORMATION
  Report Type: 
  Country: None (occurrence: None)
  Receive Date: 20120202
  Receipt Date: 20120127
  Transmission Date: 20120608
  Serious: Yes (Other)
  Sender: FDA-Public Use
  Company Number: PHHY2012BR007607

PATIENT
  Sex: Female

DRUGS (1)
  1. PARLODEL [Suspect]
     Dosage: 1 TABLET AT 09:00PM
     Route: 048
     Dates: start: 20120126

REACTIONS (6)
  - BREAST SWELLING [None]
  - SYNCOPE [None]
  - MALAISE [None]
  - LOSS OF CONSCIOUSNESS [None]
  - TOOTH INJURY [None]
  - DYSPNOEA [None]
